FAERS Safety Report 24110418 (Version 1)
Quarter: 2024Q3

REPORT INFORMATION
  Report Type: Spontaneous
  Country: US (occurrence: US)
  Receive Date: 20240718
  Receipt Date: 20240718
  Transmission Date: 20241017
  Serious: No
  Sender: PFIZER
  Company Number: US-PFIZER INC-202400217739

PATIENT
  Age: 84 Year
  Sex: Female

DRUGS (1)
  1. IBRANCE [Suspect]
     Active Substance: PALBOCICLIB
     Dosage: 75 MG, CYCLIC (ONE 75 MG CAPSULE DAILY, 3 WEEKS ON, ONE WEEK OFF)
     Route: 048
     Dates: start: 2016, end: 202406

REACTIONS (1)
  - Neoplasm progression [Unknown]
